FAERS Safety Report 22256334 (Version 1)
Quarter: 2023Q2

REPORT INFORMATION
  Report Type: Spontaneous
  Country: PT (occurrence: PT)
  Receive Date: 20230426
  Receipt Date: 20230426
  Transmission Date: 20230722
  Serious: Yes (Other)
  Sender: FDA-Public Use
  Company Number: PT-SA-2023SA128441

PATIENT
  Age: 85 Year
  Sex: Male

DRUGS (25)
  1. ISONIAZID [Suspect]
     Active Substance: ISONIAZID
     Indication: Pulmonary tuberculosis
     Dosage: 300 MG, QD
     Route: 048
     Dates: start: 20230321, end: 20230330
  2. ISONIAZID [Suspect]
     Active Substance: ISONIAZID
     Dosage: 50 MG, QD
     Route: 048
     Dates: start: 20230405, end: 20230405
  3. ISONIAZID [Suspect]
     Active Substance: ISONIAZID
     Dosage: 100 MG, QD
     Route: 048
     Dates: start: 20230406, end: 20230406
  4. ISONIAZID [Suspect]
     Active Substance: ISONIAZID
     Dosage: 150 MG, QD
     Route: 048
     Dates: start: 20230407, end: 20230407
  5. ISONIAZID [Suspect]
     Active Substance: ISONIAZID
     Dosage: 300 MG, QD
     Route: 048
     Dates: start: 20230408, end: 202304
  6. RIFADIN [Suspect]
     Active Substance: RIFAMPIN
     Dosage: 600 MG, QD
     Route: 048
     Dates: start: 20230321, end: 20230331
  7. RIFADIN [Suspect]
     Active Substance: RIFAMPIN
     Dosage: 300 MG, QD
     Route: 048
     Dates: start: 20230411, end: 202304
  8. ETHAMBUTOL HYDROCHLORIDE [Suspect]
     Active Substance: ETHAMBUTOL HYDROCHLORIDE
     Indication: Pulmonary tuberculosis
     Dosage: 1200 MG, QD
     Dates: start: 20230321, end: 20230331
  9. ETHAMBUTOL HYDROCHLORIDE [Suspect]
     Active Substance: ETHAMBUTOL HYDROCHLORIDE
     Dosage: 1200 MG, QD
     Route: 048
     Dates: start: 20230405, end: 202304
  10. PYRAZINAMIDE [Suspect]
     Active Substance: PYRAZINAMIDE
     Indication: Pulmonary tuberculosis
     Dosage: 1500 MG, QD
     Route: 048
     Dates: start: 20230321, end: 20230331
  11. PYRAZINAMIDE [Suspect]
     Active Substance: PYRAZINAMIDE
     Dosage: 250 MG, QD
     Route: 048
     Dates: start: 20230414
  12. LORAZEPAM [Concomitant]
     Active Substance: LORAZEPAM
     Dosage: 1 MG, QD
     Route: 048
  13. BISACODILO [Concomitant]
     Dosage: 10 MG, QD
     Route: 048
  14. INSULIN HUMAN [Concomitant]
     Active Substance: INSULIN HUMAN
     Dosage: 1 IU, PRN
     Route: 058
  15. PYRIDOXINE HYDROCHLORIDE [Concomitant]
     Active Substance: PYRIDOXINE HYDROCHLORIDE
     Dosage: 300 MG, QD
     Route: 048
  16. QUETIAPINE [Concomitant]
     Active Substance: QUETIAPINE
     Dosage: 100 MG, QD
     Route: 048
  17. QUETIAPINE [Concomitant]
     Active Substance: QUETIAPINE
     Dosage: 25 MG, PRN
     Route: 048
  18. ENOXAPARIN [Concomitant]
     Active Substance: ENOXAPARIN
     Dosage: 40 MG, QD
     Route: 058
  19. METOCLOPRAMIDE [Concomitant]
     Active Substance: METOCLOPRAMIDE
     Dosage: 10 MG, BID
     Route: 030
  20. IPRATROPIUM BROMIDE [Concomitant]
     Active Substance: IPRATROPIUM BROMIDE\IPRATROPIUM BROMIDE ANHYDROUS
     Dosage: 40 UG, Q8H
     Route: 055
  21. DEXAMETHASONE [Concomitant]
     Active Substance: DEXAMETHASONE
     Dosage: 6 MG, QD
     Route: 030
  22. ACETAMINOPHEN [Concomitant]
     Active Substance: ACETAMINOPHEN
     Dosage: 1000 MG, PRN
     Route: 048
  23. PANTOPRAZOLE [Concomitant]
     Active Substance: PANTOPRAZOLE
     Dosage: 40 MG, QD
     Route: 048
  24. AMOXICILLIN\CLAVULANIC ACID [Concomitant]
     Active Substance: AMOXICILLIN\CLAVULANIC ACID
     Dosage: 1.2 G, Q8H
     Route: 040
  25. SENNOSIDES A AND B [Concomitant]
     Active Substance: SENNOSIDES A AND B
     Dosage: 24 MG, QD
     Route: 048

REACTIONS (2)
  - Transaminases increased [Recovering/Resolving]
  - Hepatotoxicity [Recovering/Resolving]

NARRATIVE: CASE EVENT DATE: 20230330
